FAERS Safety Report 9401637 (Version 2)
Quarter: 2014Q1

REPORT INFORMATION
  Report Type: Report from Study
  Country: NZ (occurrence: NZ)
  Receive Date: 20130716
  Receipt Date: 20140101
  Transmission Date: 20141002
  Serious: Yes (Hospitalization)
  Sender: FDA-Public Use
  Company Number: NZ-BIOGENIDEC-2013BI061223

PATIENT
  Age: 50 Year
  Sex: Female
  Weight: 92 kg

DRUGS (8)
  1. BG00012 [Suspect]
     Indication: MULTIPLE SCLEROSIS
     Dates: start: 20080904
  2. FLUOXETINE [Concomitant]
     Indication: DEPRESSION
  3. FISH OIL [Concomitant]
     Route: 048
  4. MULTIVITAMIN [Concomitant]
     Route: 048
  5. IBUPROFEN [Concomitant]
     Indication: MUSCLE STRAIN
     Route: 048
     Dates: start: 20130510
  6. IBUPROFEN [Concomitant]
     Indication: ARTHRALGIA
     Route: 048
     Dates: start: 20130510
  7. VITAMIN D [Concomitant]
     Indication: MULTIPLE SCLEROSIS
     Dates: start: 20120115
  8. FAMPRIDINE [Concomitant]
     Indication: GAIT DISTURBANCE
     Dates: start: 20130325, end: 20130410

REACTIONS (1)
  - Musculoskeletal pain [Not Recovered/Not Resolved]
